FAERS Safety Report 24364058 (Version 1)
Quarter: 2024Q3

REPORT INFORMATION
  Report Type: Spontaneous
  Country: JP (occurrence: JP)
  Receive Date: 20240925
  Receipt Date: 20240925
  Transmission Date: 20241016
  Serious: Yes (Death)
  Sender: Unknown Manufacturer
  Company Number: JP-MTPC-MTPC2024-0019923

PATIENT
  Age: 50 Year
  Sex: Female

DRUGS (6)
  1. EDARAVONE [Suspect]
     Active Substance: EDARAVONE
     Indication: Artery dissection
     Route: 065
  2. EDARAVONE [Suspect]
     Active Substance: EDARAVONE
     Indication: Cerebral infarction
  3. ASPIRIN [Concomitant]
     Active Substance: ASPIRIN
     Indication: Artery dissection
     Route: 065
  4. ASPIRIN [Concomitant]
     Active Substance: ASPIRIN
     Indication: Cerebral infarction
  5. DEXTRAN [Concomitant]
     Active Substance: DEXTRAN
     Indication: Artery dissection
     Route: 065
  6. DEXTRAN [Concomitant]
     Active Substance: DEXTRAN
     Indication: Cerebral infarction

REACTIONS (2)
  - Subarachnoid haemorrhage [Fatal]
  - Intracranial aneurysm [Fatal]
